FAERS Safety Report 5646199-0 (Version None)
Quarter: 2008Q1

REPORT INFORMATION
  Report Type: 
  Country: None (occurrence: None)
  Receive Date: 20080227
  Receipt Date: 20080213
  Transmission Date: 20080703
  Serious: No
  Sender: FDA-Public Use
  Company Number: 2008SP002266

PATIENT
  Age: 52 Year
  Sex: Female

DRUGS (1)
  1. CLARITIN [Suspect]
     Indication: ECZEMA ASTEATOTIC
     Dosage: 10 MG; PO
     Route: 048
     Dates: start: 20080121, end: 20080128

REACTIONS (1)
  - DIARRHOEA [None]
